FAERS Safety Report 4378660-3 (Version None)
Quarter: 2004Q2

REPORT INFORMATION
  Report Type: 
  Country: None (occurrence: None)
  Receive Date: 20040609
  Receipt Date: 20040524
  Transmission Date: 20050107
  Serious: Yes (Life-Threatening)
  Sender: FDA-Public Use
  Company Number: A01200402396

PATIENT
  Sex: Female

DRUGS (4)
  1. PLAVIX [Suspect]
     Indication: ATHEROSCLEROSIS
     Dosage: 75 MG QD
     Route: 048
     Dates: start: 20040304, end: 20040422
  2. ZOTON - (LANSOPRAZOLE) - UNKNOWN - UNIT DOSE : UNKNOWN [Suspect]
     Indication: GASTRITIS
     Dosage: 30 MG QD
     Route: 048
     Dates: start: 20040304, end: 20040422
  3. ACETAMINOPHEN [Concomitant]
  4. DOMPERIDONE [Concomitant]

REACTIONS (2)
  - AGRANULOCYTOSIS [None]
  - NEUTROPENIC SEPSIS [None]
